FAERS Safety Report 23924750 (Version 1)
Quarter: 2024Q2

REPORT INFORMATION
  Report Type: Spontaneous
  Country: US (occurrence: None)
  Receive Date: 20240530
  Receipt Date: 20240530
  Transmission Date: 20240716
  Serious: Yes (Other)
  Sender: FDA-Public Use
  Company Number: None

PATIENT
  Age: 57 Year
  Sex: Female
  Weight: 60.75 kg

DRUGS (1)
  1. JARDIANCE [Suspect]
     Active Substance: EMPAGLIFLOZIN
     Indication: Chronic kidney disease
     Dosage: OTHER QUANTITY : 1 TABLET(S);?
     Route: 048
     Dates: start: 20240428, end: 20240528

REACTIONS (6)
  - Cognitive disorder [None]
  - Affective disorder [None]
  - Anhedonia [None]
  - Asthenia [None]
  - Impaired driving ability [None]
  - Bradyphrenia [None]

NARRATIVE: CASE EVENT DATE: 20240506
